FAERS Safety Report 15435131 (Version 1)
Quarter: 2018Q3

REPORT INFORMATION
  Report Type: Spontaneous
  Country: SI (occurrence: SI)
  Receive Date: 20180927
  Receipt Date: 20180927
  Transmission Date: 20181010
  Serious: Yes (Death, Other)
  Sender: FDA-Public Use
  Company Number: SI-IPSEN BIOPHARMACEUTICALS, INC.-2018-14915

PATIENT
  Age: 69 Year
  Sex: Female
  Weight: 73 kg

DRUGS (10)
  1. 5 FLUOROURACIL [Suspect]
     Active Substance: FLUOROURACIL
     Indication: PANCREATIC CARCINOMA METASTATIC
     Dosage: 7 APPLICATIONS
     Route: 042
     Dates: start: 201708, end: 201712
  2. ABRAXANE [Suspect]
     Active Substance: PACLITAXEL
     Indication: PRODUCT USED FOR UNKNOWN INDICATION
  3. LEUCOVORIN. [Suspect]
     Active Substance: LEUCOVORIN
     Indication: PANCREATIC CARCINOMA METASTATIC
     Dosage: 7 APLICATIONS
     Route: 042
     Dates: start: 201708, end: 201712
  4. LEUCOVORIN. [Suspect]
     Active Substance: LEUCOVORIN
     Dosage: 6 APPLICATIONS
     Route: 042
     Dates: start: 201801, end: 201803
  5. GEMCITABINE [Suspect]
     Active Substance: GEMCITABINE\GEMCITABINE HYDROCHLORIDE
     Indication: PRODUCT USED FOR UNKNOWN INDICATION
  6. ONIVYDE [Suspect]
     Active Substance: IRINOTECAN HYDROCHLORIDE
     Dosage: 7 APPLICATIONS
     Route: 042
     Dates: start: 201708, end: 201712
  7. 5 FLUOROURACIL [Suspect]
     Active Substance: FLUOROURACIL
     Dosage: 6 APPLICATIONS
     Route: 042
     Dates: start: 201801, end: 201803
  8. ONIVYDE [Suspect]
     Active Substance: IRINOTECAN HYDROCHLORIDE
     Indication: PANCREATIC CARCINOMA METASTATIC
     Dosage: 6 APPLICATION
     Route: 042
     Dates: start: 201801, end: 201803
  9. CALCIUM FOLINATE [Suspect]
     Active Substance: LEUCOVORIN CALCIUM
     Indication: PRODUCT USED FOR UNKNOWN INDICATION
  10. OXALIPLATIN. [Suspect]
     Active Substance: OXALIPLATIN
     Indication: PRODUCT USED FOR UNKNOWN INDICATION

REACTIONS (9)
  - Spinal fracture [Recovered/Resolved]
  - Nausea [Recovered/Resolved]
  - Death [Fatal]
  - Large intestine perforation [Recovered/Resolved]
  - Disease progression [Unknown]
  - Metastases to skin [Recovered/Resolved]
  - Osteoporotic fracture [Recovered/Resolved]
  - Fatigue [Recovered/Resolved]
  - Diarrhoea [Recovered/Resolved]

NARRATIVE: CASE EVENT DATE: 2018
